FAERS Safety Report 16365903 (Version 3)
Quarter: 2019Q3

REPORT INFORMATION
  Report Type: Spontaneous
  Country: US (occurrence: US)
  Receive Date: 20190529
  Receipt Date: 20190823
  Transmission Date: 20191004
  Serious: No
  Sender: FDA-Public Use
  Company Number: US-ASTRAZENECA-2019SE77154

PATIENT
  Sex: Male
  Weight: 94.3 kg

DRUGS (22)
  1. BABY ASPIRIN [Concomitant]
     Active Substance: ASPIRIN
     Route: 048
  2. VITAMIN [Concomitant]
     Active Substance: VITAMINS
     Route: 048
  3. EZETIMIBE. [Concomitant]
     Active Substance: EZETIMIBE
     Indication: BLOOD CHOLESTEROL INCREASED
     Route: 048
  4. TOUJEO SOLOSTAR SHOT [Concomitant]
     Indication: DIABETES MELLITUS
     Dosage: 50USP UNITS AT NIGHT
  5. VELTASSA [Concomitant]
     Active Substance: PATIROMER
  6. GABAPENTIN HCL [Concomitant]
  7. ATORVASTATIN [Concomitant]
     Active Substance: ATORVASTATIN
     Indication: BLOOD CHOLESTEROL
     Route: 048
  8. REFRESH EYE DROPS [Concomitant]
  9. MELATONIN [Concomitant]
     Active Substance: MELATONIN
     Route: 048
  10. VASCEPA [Concomitant]
     Active Substance: ICOSAPENT ETHYL
     Indication: BLOOD CHOLESTEROL INCREASED
     Route: 048
  11. METOPROLOL TARTRATE. [Suspect]
     Active Substance: METOPROLOL TARTRATE
     Indication: CARDIAC DISORDER
     Route: 048
  12. CHLORTHALIDONE. [Concomitant]
     Active Substance: CHLORTHALIDONE
     Indication: RENAL DISORDER
     Route: 050
  13. WARFARIN [Concomitant]
     Active Substance: WARFARIN
     Indication: CARDIAC VALVE DISEASE
     Route: 048
  14. LEVOTHYROXINE. [Concomitant]
     Active Substance: LEVOTHYROXINE
     Indication: BLOOD CHOLESTEROL INCREASED
     Route: 048
  15. LOFA [Concomitant]
  16. LOKELMA [Suspect]
     Active Substance: SODIUM ZIRCONIUM CYCLOSILICATE
     Indication: BLOOD POTASSIUM INCREASED
     Route: 048
     Dates: end: 20190507
  17. HYDRALAZINE HCL [Concomitant]
     Active Substance: HYDRALAZINE HYDROCHLORIDE
  18. CARTIA-XT [Concomitant]
     Indication: BLOOD PRESSURE ABNORMAL
     Route: 048
  19. CLONIDINE. [Concomitant]
     Active Substance: CLONIDINE
     Route: 048
  20. TYLENOL [Concomitant]
     Active Substance: ACETAMINOPHEN
     Dosage: UNKNOWN
     Route: 048
  21. ISOSORBIDE DN [Concomitant]
     Indication: CARDIAC DISORDER
     Route: 048
  22. HUMALOG KWIK PEN SHOT [Concomitant]
     Indication: DIABETES MELLITUS

REACTIONS (10)
  - Abdominal pain upper [Not Recovered/Not Resolved]
  - Vomiting [Not Recovered/Not Resolved]
  - Dizziness [Not Recovered/Not Resolved]
  - Muscular weakness [Not Recovered/Not Resolved]
  - Weight decreased [Not Recovered/Not Resolved]
  - Malaise [Unknown]
  - Discomfort [Not Recovered/Not Resolved]
  - Gait disturbance [Not Recovered/Not Resolved]
  - Nausea [Not Recovered/Not Resolved]
  - Decreased appetite [Not Recovered/Not Resolved]
